FAERS Safety Report 25639565 (Version 1)
Quarter: 2025Q3

REPORT INFORMATION
  Report Type: Spontaneous
  Country: US (occurrence: US)
  Receive Date: 20250804
  Receipt Date: 20250804
  Transmission Date: 20251020
  Serious: No
  Sender: NOVAST LABORATORIES LTD
  Company Number: US-NOVAST LABORATORIES INC.-2025NOV000213

PATIENT

DRUGS (1)
  1. DILTIAZEM HYDROCHLORIDE [Suspect]
     Active Substance: DILTIAZEM HYDROCHLORIDE
     Indication: Hypertension
     Route: 065
     Dates: start: 20250321

REACTIONS (10)
  - Eye pruritus [Recovered/Resolved]
  - Dry eye [Recovered/Resolved]
  - Nasal pruritus [Recovered/Resolved]
  - Paranasal sinus hyposecretion [Recovered/Resolved]
  - Throat clearing [Recovered/Resolved]
  - Blood pressure increased [Recovered/Resolved]
  - Arthralgia [Recovered/Resolved]
  - Swelling face [Recovered/Resolved]
  - Headache [Recovered/Resolved]
  - Product quality issue [Unknown]

NARRATIVE: CASE EVENT DATE: 20250321
